FAERS Safety Report 9507898 (Version 1)
Quarter: 2013Q1

REPORT INFORMATION
  Report Type: Spontaneous
  Country: US (occurrence: None)
  Receive Date: 20130305
  Receipt Date: 20130305
  Transmission Date: 20140127
  Serious: No
  Sender: FDA-Public Use
  Company Number: 163-21880-12030541

PATIENT
  Age: 70 Year
  Sex: Female

DRUGS (4)
  1. REVLIMID (LENALIDOMIDE) (10 MILLIGRAM CAPSULES) [Suspect]
     Indication: PLASMA CELL MYELOMA
     Dosage: 10MG, 1 IN 1 D, PO
     Route: 048
     Dates: start: 201109
  2. BORTEZOMIB (BORTEZOMIB) [Concomitant]
  3. PREDNISONE (PREDNISONE) [Concomitant]
  4. NEULESTA [Concomitant]

REACTIONS (1)
  - Fatigue [None]
